FAERS Safety Report 5130482-1 (Version None)
Quarter: 2006Q4

REPORT INFORMATION
  Report Type: 
  Country: None (occurrence: None)
  Receive Date: 20061019
  Receipt Date: 20050714
  Transmission Date: 20070319
  Serious: Yes (Other)
  Sender: FDA-Public Use
  Company Number: US-GLAXOSMITHKLINE-A0566547A

PATIENT
  Sex: Male
  Weight: 61.4 kg

DRUGS (5)
  1. PAXIL [Suspect]
     Indication: SOCIAL PHOBIA
     Dosage: 20MG PER DAY
     Route: 048
     Dates: start: 20010601
  2. PAXIL CR [Suspect]
     Indication: OBSESSIVE-COMPULSIVE DISORDER
     Dosage: 37.5MG PER DAY
     Route: 048
     Dates: start: 20040201
  3. ATIVAN [Concomitant]
  4. RESTORIL [Concomitant]
  5. SEROQUEL [Concomitant]
     Dosage: 50MG AT NIGHT

REACTIONS (18)
  - ANHEDONIA [None]
  - ANXIETY [None]
  - BLOOD PRESSURE DECREASED [None]
  - CONVULSION [None]
  - DEPRESSED MOOD [None]
  - DEPRESSION [None]
  - DIZZINESS [None]
  - DRUG INEFFECTIVE [None]
  - DRUG WITHDRAWAL SYNDROME [None]
  - DYSPNOEA [None]
  - FAECAL INCONTINENCE [None]
  - FEELING OF DESPAIR [None]
  - FEELINGS OF WORTHLESSNESS [None]
  - INSOMNIA [None]
  - OBSESSIVE THOUGHTS [None]
  - PANIC ATTACK [None]
  - PARAESTHESIA [None]
  - SUICIDAL IDEATION [None]
